FAERS Safety Report 15782222 (Version 1)
Quarter: 2019Q1

REPORT INFORMATION
  Report Type: Spontaneous
  Country: US (occurrence: US)
  Receive Date: 20190102
  Receipt Date: 20190102
  Transmission Date: 20190417
  Serious: Yes (Other)
  Sender: FDA-Public Use
  Company Number: US-PFIZER INC-2018077265

PATIENT
  Age: 8 Year
  Sex: Male

DRUGS (1)
  1. GENOTROPIN [Suspect]
     Active Substance: SOMATROPIN
     Indication: PIERRE ROBIN SYNDROME
     Dosage: 0.7 MG, DAILY

REACTIONS (6)
  - Foetal alcohol syndrome [Unknown]
  - Product dose omission [Unknown]
  - Product use in unapproved indication [Unknown]
  - Bone density increased [Unknown]
  - Blood glucose increased [Unknown]
  - Cleft palate [Unknown]
